FAERS Safety Report 13983594 (Version 1)
Quarter: 2017Q3

REPORT INFORMATION
  Report Type: Spontaneous
  Country: US (occurrence: US)
  Receive Date: 20170918
  Receipt Date: 20170918
  Transmission Date: 20171128
  Serious: Yes (Other)
  Sender: FDA-Public Use
  Company Number: US-PFIZER INC-2017397861

PATIENT
  Sex: Female

DRUGS (4)
  1. AMINOPHYLLINE. [Suspect]
     Active Substance: AMINOPHYLLINE
     Dosage: UNK
  2. LEXISCAN [Suspect]
     Active Substance: REGADENOSON
     Indication: CARDIAC STRESS TEST
     Dosage: UNK
     Dates: start: 201704
  3. LEXISCAN [Suspect]
     Active Substance: REGADENOSON
     Dosage: UNK
     Dates: start: 201705
  4. LEXISCAN [Suspect]
     Active Substance: REGADENOSON
     Dosage: UNK
     Dates: start: 201707

REACTIONS (1)
  - Cardiac arrest [Unknown]
